FAERS Safety Report 6684165-7 (Version None)
Quarter: 2010Q2

REPORT INFORMATION
  Report Type: 
  Country: None (occurrence: None)
  Receive Date: 20100416
  Receipt Date: 20100407
  Transmission Date: 20101027
  Serious: Yes (Death)
  Sender: FDA-Public Use
  Company Number: US-MYLANLABS-2010S1005987

PATIENT
  Sex: Male

DRUGS (4)
  1. FENTANYL [Suspect]
     Indication: ABDOMINAL PAIN
     Dosage: Q 72 HOURS
     Route: 062
     Dates: start: 20080409, end: 20080412
  2. FENTANYL [Suspect]
     Indication: PAIN
     Dosage: Q 72 HOURS
     Route: 062
     Dates: start: 20080409, end: 20080412
  3. FENTANYL [Suspect]
     Dosage: Q 72 HOURS
     Route: 062
     Dates: start: 20080412, end: 20100417
  4. FENTANYL [Suspect]
     Dosage: Q 72 HOURS
     Route: 062
     Dates: start: 20080412, end: 20100417

REACTIONS (2)
  - DRUG PRESCRIBING ERROR [None]
  - NARCOTIC INTOXICATION [None]
